FAERS Safety Report 26147766 (Version 1)
Quarter: 2025Q4

REPORT INFORMATION
  Report Type: Spontaneous
  Country: CA (occurrence: CA)
  Receive Date: 20251211
  Receipt Date: 20251211
  Transmission Date: 20260118
  Serious: Yes (Hospitalization, Other)
  Sender: ABBVIE
  Company Number: CA-TEVA-VS-3385013

PATIENT
  Age: 17 Year
  Sex: Male

DRUGS (9)
  1. CARIPRAZINE HYDROCHLORIDE [Suspect]
     Active Substance: CARIPRAZINE HYDROCHLORIDE
     Indication: Schizophrenia
     Route: 048
  2. DEXLANSOPRAZOLE [Concomitant]
     Active Substance: DEXLANSOPRAZOLE
     Indication: Product used for unknown indication
  3. CLOZAPINE [Suspect]
     Active Substance: CLOZAPINE
     Indication: Schizophrenia
     Route: 048
  4. CLOZAPINE [Suspect]
     Active Substance: CLOZAPINE
     Indication: Schizophrenia
     Route: 048
  5. OLANZAPINE [Suspect]
     Active Substance: OLANZAPINE
     Indication: Schizophrenia
     Route: 048
  6. RISPERIDONE [Suspect]
     Active Substance: RISPERIDONE
     Indication: Schizophrenia
     Route: 048
  7. FAMOTIDINE [Concomitant]
     Active Substance: FAMOTIDINE
     Indication: Product used for unknown indication
  8. CLEARLAX [Concomitant]
     Active Substance: POLYETHYLENE GLYCOL 3350
     Indication: Product used for unknown indication
  9. Glycopyrronium bromide martindale [Concomitant]
     Indication: Product used for unknown indication

REACTIONS (10)
  - Overdose [Unknown]
  - Tremor [Unknown]
  - Tachycardia [Unknown]
  - Hyperhidrosis [Unknown]
  - Hypotonia [Unknown]
  - Neuroleptic malignant syndrome [Unknown]
  - Orthostatic hypertension [Unknown]
  - Mydriasis [Unknown]
  - Speech disorder [Unknown]
  - Extrapyramidal disorder [Unknown]
